FAERS Safety Report 20873533 (Version 1)
Quarter: 2022Q2

REPORT INFORMATION
  Report Type: Spontaneous
  Country: US (occurrence: US)
  Receive Date: 20220525
  Receipt Date: 20220525
  Transmission Date: 20220720
  Serious: No
  Sender: FDA-Public Use
  Company Number: US-PFIZER INC-202200744404

PATIENT
  Age: 63 Year
  Sex: Female

DRUGS (2)
  1. EUCRISA [Suspect]
     Active Substance: CRISABOROLE
     Indication: Eczema
     Dosage: UNK, AS NEEDED
  2. LIDEX [Concomitant]
     Active Substance: FLUOCINONIDE
     Indication: Eczema
     Dosage: UNK (USES SPARINGLY)

REACTIONS (5)
  - Rubber sensitivity [Unknown]
  - Dermatitis atopic [Unknown]
  - Therapeutic product effect incomplete [Unknown]
  - Sensitivity to weather change [Unknown]
  - Off label use [Unknown]
